FAERS Safety Report 5905379-7 (Version None)
Quarter: 2008Q4

REPORT INFORMATION
  Report Type: 
  Country: None (occurrence: None)
  Receive Date: 20081001
  Receipt Date: 20080611
  Transmission Date: 20090506
  Serious: Yes (Hospitalization)
  Sender: FDA-Public Use
  Company Number: FR-PFIZER INC-2008080638

PATIENT
  Sex: Male
  Weight: 60 kg

DRUGS (5)
  1. SU-011,248 [Suspect]
     Indication: RENAL CELL CARCINOMA
     Route: 048
     Dates: start: 20080513, end: 20080608
  2. ACETYLSALICYLATE LYSINE [Concomitant]
     Dosage: DAILY DOSE:75MG
     Route: 048
     Dates: start: 20080508
  3. MOLSIDOMINE [Concomitant]
     Route: 048
  4. CAPTOPRIL [Concomitant]
     Route: 048
  5. ATORVASTATIN CALCIUM [Concomitant]
     Route: 048

REACTIONS (1)
  - MYOCARDIAL INFARCTION [None]
